FAERS Safety Report 9440401 (Version 1)
Quarter: 2013Q3

REPORT INFORMATION
  Report Type: Spontaneous
  Country: US (occurrence: US)
  Receive Date: 20130805
  Receipt Date: 20130805
  Transmission Date: 20140515
  Serious: Yes (Hospitalization)
  Sender: FDA-Public Use
  Company Number: US-BAYER-2013-093564

PATIENT
  Age: 37 Year
  Sex: Female

DRUGS (20)
  1. YAZ [Suspect]
     Dosage: UNK
  2. OCELLA [Suspect]
  3. YASMIN [Suspect]
     Dosage: UNK
  4. ANAPROX DS [Concomitant]
  5. NAPROXEN [Concomitant]
     Dosage: UNK
     Dates: start: 201109
  6. TORADOL [Concomitant]
  7. ROBAXIN [Concomitant]
  8. PERCOCET [Concomitant]
     Dosage: UNK
     Dates: start: 201109
  9. CEFAZOLIN [Concomitant]
     Dosage: UNK
     Dates: start: 20110911
  10. DILAUDID [Concomitant]
     Dosage: UNK
     Dates: start: 20110911
  11. ANAPROX [Concomitant]
     Dosage: UNK
     Dates: start: 201109
  12. VERSED [Concomitant]
     Dosage: UNK
     Dates: start: 20110911
  13. ROCURONIUM [Concomitant]
     Dosage: UNK
     Dates: start: 20110911
  14. PROPOFOL [Concomitant]
     Dosage: UNK
     Dates: start: 20110911
  15. LIDOCAINE [Concomitant]
     Dosage: UNK
     Dates: start: 20110911
  16. FENTANYL [Concomitant]
     Dosage: UNK
     Dates: start: 20110911
  17. DEXAMETHASONE [Concomitant]
     Dosage: UNK
     Dates: start: 20110911
  18. ONDANSETRON [Concomitant]
     Dosage: UNK
     Dates: start: 20110911
  19. GLYCOPYRROLATE [Concomitant]
     Dosage: UNK
     Dates: start: 20110911
  20. NEOSTIGMINE [Concomitant]
     Dosage: UNK
     Dates: start: 20110911

REACTIONS (1)
  - Pulmonary embolism [None]
